FAERS Safety Report 21328493 (Version 2)
Quarter: 2022Q4

REPORT INFORMATION
  Report Type: Spontaneous
  Country: US (occurrence: US)
  Receive Date: 20220913
  Receipt Date: 20221214
  Transmission Date: 20230113
  Serious: No
  Sender: FDA-Public Use
  Company Number: US-PFIZER INC-202200810782

PATIENT
  Age: 70 Year
  Sex: Female

DRUGS (1)
  1. XELJANZ [Suspect]
     Active Substance: TOFACITINIB CITRATE
     Indication: Rheumatoid arthritis
     Dosage: 5 MG, 2X/DAY
     Route: 048
     Dates: start: 201910

REACTIONS (4)
  - Product dose omission issue [Unknown]
  - Joint stiffness [Recovering/Resolving]
  - Fatigue [Recovering/Resolving]
  - Arthralgia [Recovering/Resolving]
